FAERS Safety Report 5933743-9 (Version None)
Quarter: 2008Q4

REPORT INFORMATION
  Report Type: 
  Country: None (occurrence: None)
  Receive Date: 20081029
  Receipt Date: 20081021
  Transmission Date: 20090506
  Serious: Yes (Other)
  Sender: FDA-Public Use
  Company Number: US-ROCHE-592822

PATIENT
  Age: 41 Year
  Sex: Female

DRUGS (5)
  1. PEG-INTERFERON ALFA 2A (RO 25-8310) [Suspect]
     Indication: HEPATITIS C
     Route: 065
     Dates: start: 20080624
  2. RIBAVIRIN [Suspect]
     Indication: HEPATITIS C
     Route: 065
     Dates: start: 20080624
  3. PHENOBARBITAL TAB [Concomitant]
  4. PRILOSEC [Concomitant]
  5. DILANTIN [Concomitant]

REACTIONS (4)
  - GRAND MAL CONVULSION [None]
  - PAIN [None]
  - PYREXIA [None]
  - VOMITING [None]
